FAERS Safety Report 7043309-8 (Version None)
Quarter: 2010Q4

REPORT INFORMATION
  Report Type: 
  Country: None (occurrence: None)
  Receive Date: 20101013
  Receipt Date: 20100106
  Transmission Date: 20110411
  Serious: No
  Sender: FDA-Public Use
  Company Number: US-ASTRAZENECA-2010SE00461

PATIENT
  Age: 51 Year
  Sex: Male

DRUGS (4)
  1. SYMBICORT [Suspect]
     Indication: EMPHYSEMA
     Dosage: 80/4.5 MCG
     Route: 055
     Dates: start: 20091201
  2. SPIRIVA [Concomitant]
  3. PROAIR HFA [Concomitant]
  4. DIOVAN [Concomitant]

REACTIONS (2)
  - DYSGEUSIA [None]
  - INCREASED UPPER AIRWAY SECRETION [None]
